FAERS Safety Report 5358033-7 (Version None)
Quarter: 2007Q2

REPORT INFORMATION
  Report Type: 
  Country: None (occurrence: None)
  Receive Date: 20070530
  Receipt Date: 20061031
  Transmission Date: 20071010
  Serious: Yes (Hospitalization)
  Sender: FDA-Public Use
  Company Number: US200606001576

PATIENT
  Age: 62 Year
  Sex: Female
  Weight: 126.1 kg

DRUGS (2)
  1. ZYPREXA [Suspect]
     Dates: start: 20040101, end: 20040301
  2. ALPRAZOLAM [Concomitant]

REACTIONS (5)
  - BLOOD CHOLESTEROL ABNORMAL [None]
  - BLOOD TRIGLYCERIDES INCREASED [None]
  - DIABETES MELLITUS [None]
  - HYPERTENSION [None]
  - METABOLIC DISORDER [None]
